FAERS Safety Report 12602017 (Version 1)
Quarter: 2016Q3

REPORT INFORMATION
  Report Type: Spontaneous
  Country: US (occurrence: US)
  Receive Date: 20160728
  Receipt Date: 20160728
  Transmission Date: 20161109
  Serious: No
  Sender: FDA-Public Use
  Company Number: US-PFIZER INC-2016326678

PATIENT
  Age: 81 Year
  Sex: Female
  Weight: 58 kg

DRUGS (3)
  1. BISOPROLOL [Concomitant]
     Active Substance: BISOPROLOL
     Dosage: 10 MG, UNK, ONCE PER WEEK
     Dates: start: 2001
  2. OXAPROZIN. [Suspect]
     Active Substance: OXAPROZIN
     Indication: ARTHRITIS
     Dosage: 600 MG, AS NEEDED, PER DAY
     Dates: start: 20160629
  3. LIPITOR [Concomitant]
     Active Substance: ATORVASTATIN CALCIUM
     Dosage: 10 MG, UNK, ON THURSDAY NIGHTS

REACTIONS (4)
  - Diarrhoea [Recovering/Resolving]
  - Drug intolerance [Unknown]
  - Palpitations [Not Recovered/Not Resolved]
  - Gastrointestinal disorder [Unknown]

NARRATIVE: CASE EVENT DATE: 20160630
